FAERS Safety Report 8500992-5 (Version None)
Quarter: 2012Q2

REPORT INFORMATION
  Report Type: 
  Country: None (occurrence: None)
  Receive Date: 20120629
  Receipt Date: 20120621
  Transmission Date: 20120825
  Serious: Yes (Other)
  Sender: FDA-Public Use
  Company Number: ADR-2012-01177

PATIENT
  Sex: Female

DRUGS (3)
  1. FENTANYL [Concomitant]
  2. MORPHINE [Concomitant]
  3. BACLOFEN [Suspect]
     Indication: PAIN

REACTIONS (5)
  - RESTLESSNESS [None]
  - ASTHENIA [None]
  - ACTIVITIES OF DAILY LIVING IMPAIRED [None]
  - FEELING ABNORMAL [None]
  - HYPOAESTHESIA [None]
